FAERS Safety Report 4387370-8 (Version None)
Quarter: 2004Q2

REPORT INFORMATION
  Report Type: 
  Country: None (occurrence: None)
  Receive Date: 20040625
  Receipt Date: 20040616
  Transmission Date: 20050107
  Serious: Yes (Hospitalization)
  Sender: FDA-Public Use
  Company Number: 2004-05-0543

PATIENT
  Age: 43 Year
  Sex: Male

DRUGS (1)
  1. AERIUS (DESLORATADINE) TABLETS 'LIKE CLARINEX' [Suspect]
     Indication: RHINITIS ALLERGIC
     Dosage: 5 MG QD ORAL
     Route: 048
     Dates: start: 20040421, end: 20040428

REACTIONS (10)
  - ANOREXIA [None]
  - ANTITHROMBIN III DECREASED [None]
  - ASTHENIA [None]
  - BLOOD ALBUMIN ABNORMAL [None]
  - GLOMERULONEPHRITIS MINIMAL LESION [None]
  - HYPERCHOLESTEROLAEMIA [None]
  - HYPERTRIGLYCERIDAEMIA [None]
  - HYPOGLOBULINAEMIA [None]
  - NEPHROTIC SYNDROME [None]
  - WEIGHT INCREASED [None]
